FAERS Safety Report 5916350-3 (Version None)
Quarter: 2008Q4

REPORT INFORMATION
  Report Type: 
  Country: None (occurrence: None)
  Receive Date: 20081013
  Receipt Date: 20081006
  Transmission Date: 20090506
  Serious: Yes (Hospitalization, Other)
  Sender: FDA-Public Use
  Company Number: US-BAYER-200831657NA

PATIENT
  Age: 63 Year
  Sex: Female
  Weight: 70 kg

DRUGS (12)
  1. CLIMARA [Suspect]
     Indication: HORMONE REPLACEMENT THERAPY
     Route: 062
  2. CLIMARA [Suspect]
     Indication: DRUG USE FOR UNKNOWN INDICATION
     Route: 062
  3. MIRALAX [Concomitant]
     Indication: CONSTIPATION PROPHYLAXIS
     Route: 048
  4. TYLENOL (CAPLET) [Concomitant]
     Indication: BACK PAIN
     Route: 048
  5. PRILOSEC [Concomitant]
     Indication: REFLUX GASTRITIS
     Route: 048
  6. HYZAAR [Concomitant]
     Indication: HYPERTENSION
     Route: 048
  7. FLONASE [Concomitant]
     Indication: VASOMOTOR RHINITIS
  8. CLARINEX [Concomitant]
     Indication: HYPERSENSITIVITY
     Dates: start: 20080610
  9. SYNTHROID [Concomitant]
     Indication: GOITRE
     Route: 048
  10. MUTIVITAMIN [Concomitant]
     Indication: GENERAL PHYSICAL HEALTH DETERIORATION
  11. ESTRACE [Concomitant]
     Indication: HORMONE REPLACEMENT THERAPY
  12. PROPOXYPHENE [Concomitant]
     Indication: PAIN

REACTIONS (2)
  - RASH [None]
  - SPLENIC ARTERY ANEURYSM [None]
